FAERS Safety Report 12470386 (Version 2)
Quarter: 2016Q3

REPORT INFORMATION
  Report Type: Spontaneous
  Country: JP (occurrence: JP)
  Receive Date: 20160616
  Receipt Date: 20160713
  Transmission Date: 20161109
  Serious: Yes (Other)
  Sender: FDA-Public Use
  Company Number: JP-ROCHE-1774546

PATIENT
  Age: 66 Year
  Sex: Male

DRUGS (10)
  1. LUCENTIS [Suspect]
     Active Substance: RANIBIZUMAB
     Dosage: IN THE RIGHT EYE
     Route: 050
  2. LUCENTIS [Suspect]
     Active Substance: RANIBIZUMAB
     Dosage: IN THE RIGHT EYE
     Route: 050
     Dates: start: 20160202
  3. LUCENTIS [Suspect]
     Active Substance: RANIBIZUMAB
     Indication: POLYPOIDAL CHOROIDAL VASCULOPATHY
     Dosage: IN THE RIGHT EYE
     Route: 050
     Dates: start: 201210
  4. LUCENTIS [Suspect]
     Active Substance: RANIBIZUMAB
     Dosage: IN THE RIGHT EYE
     Route: 050
     Dates: start: 201301
  5. LUCENTIS [Suspect]
     Active Substance: RANIBIZUMAB
     Dosage: IN THE RIGHT EYE
     Route: 050
     Dates: start: 20160405
  6. LUCENTIS [Suspect]
     Active Substance: RANIBIZUMAB
     Dosage: IN THE RIGHT EYE
     Route: 050
     Dates: start: 20151210
  7. LUCENTIS [Suspect]
     Active Substance: RANIBIZUMAB
     Dosage: IN THE RIGHT EYE
     Route: 050
  8. LUCENTIS [Suspect]
     Active Substance: RANIBIZUMAB
     Dosage: IN THE RIGHT EYE
     Route: 050
     Dates: start: 20151112
  9. LUCENTIS [Suspect]
     Active Substance: RANIBIZUMAB
     Dosage: IN THE RIGHT EYE
     Route: 050
     Dates: start: 20160114
  10. LUCENTIS [Suspect]
     Active Substance: RANIBIZUMAB
     Dosage: IN THE RIGHT EYE
     Route: 050
     Dates: start: 20160526

REACTIONS (7)
  - Retinal detachment [Unknown]
  - Fibrin increased [Unknown]
  - Drug effect incomplete [Unknown]
  - Macular degeneration [Unknown]
  - Visual acuity reduced [Unknown]
  - Retinal haemorrhage [Unknown]
  - Detachment of retinal pigment epithelium [Unknown]

NARRATIVE: CASE EVENT DATE: 20160119
